FAERS Safety Report 11071270 (Version 1)
Quarter: 2015Q2

REPORT INFORMATION
  Report Type: Spontaneous
  Country: US (occurrence: None)
  Receive Date: 20150427
  Receipt Date: 20150427
  Transmission Date: 20150821
  Serious: Yes (Disabling)
  Sender: FDA-Public Use
  Company Number: None

PATIENT
  Age: 18 Year
  Sex: Male
  Weight: 79.38 kg

DRUGS (4)
  1. FISH OIL [Concomitant]
     Active Substance: FISH OIL
  2. GUANFACINE ER [Suspect]
     Active Substance: GUANFACINE
     Indication: TOURETTE^S DISORDER
     Dosage: 1 PILL
     Route: 048
     Dates: start: 20150403, end: 20150411
  3. INTUNIV [Concomitant]
     Active Substance: GUANFACINE HYDROCHLORIDE
  4. SERTRALINE [Concomitant]
     Active Substance: SERTRALINE HYDROCHLORIDE

REACTIONS (5)
  - Product substitution issue [None]
  - Disturbance in attention [None]
  - Obsessive-compulsive disorder [None]
  - Condition aggravated [None]
  - Depression [None]

NARRATIVE: CASE EVENT DATE: 20150403
